FAERS Safety Report 20370599 (Version 5)
Quarter: 2022Q3

REPORT INFORMATION
  Report Type: Report from Study
  Country: CN (occurrence: CN)
  Receive Date: 20220124
  Receipt Date: 20220926
  Transmission Date: 20221027
  Serious: Yes (Hospitalization)
  Sender: FDA-Public Use
  Company Number: CN-PFIZER INC-202200079649

PATIENT
  Age: 29 Year
  Sex: Female
  Weight: 70 kg

DRUGS (7)
  1. EPIRUBICIN HYDROCHLORIDE [Suspect]
     Active Substance: EPIRUBICIN HYDROCHLORIDE
     Indication: Triple negative breast cancer
     Dosage: 161.1 MG, CYCLIC (90 MG/M2,ONCE IN 2 WK), MOST RECENT DOSE PRIOR TO SAE 02DEC2021
     Route: 042
     Dates: start: 20211118
  2. PACLITAXEL [Suspect]
     Active Substance: PACLITAXEL
     Indication: Triple negative breast cancer
     Dosage: 140.8 MG, CYCLIC (80 MG/M2,1 IN 1 WK), MOST RECENT DOSE PRIOR TO SAE 11NOV2021
     Route: 042
     Dates: start: 20210722
  3. ATEZOLIZUMAB [Suspect]
     Active Substance: ATEZOLIZUMAB
     Indication: Triple negative breast cancer
     Dosage: 840 MG, 1 IN 2 WK,MOST RECENT DOSE PRIOR TO AE 18NOV2021;MOST RECENT DOSE PRIOR TO SAE 02DEC2021
     Route: 041
     Dates: start: 20210722
  4. CYCLOPHOSPHAMIDE [Suspect]
     Active Substance: CYCLOPHOSPHAMIDE
     Indication: Triple negative breast cancer
     Dosage: 1074 MG, CYCLIC (600 MG/M2,1 IN 2 WK), MOST RECENT DOSE PRIOR TO SAE ON 02DEC2021
     Route: 042
     Dates: start: 20211118
  5. FILGRASTIM [Suspect]
     Active Substance: FILGRASTIM
     Indication: Triple negative breast cancer
     Dosage: 6 MG,1 IN 2 WK
     Route: 058
     Dates: start: 20211119, end: 20211119
  6. FILGRASTIM [Suspect]
     Active Substance: FILGRASTIM
     Dosage: 6 MG,1 IN 2 WK
     Route: 058
     Dates: start: 20211203, end: 20211203
  7. FILGRASTIM [Suspect]
     Active Substance: FILGRASTIM
     Dosage: 6 MG,1 IN 2 WK
     Route: 058
     Dates: start: 20211225, end: 20211225

REACTIONS (1)
  - Cystitis noninfective [Recovered/Resolved]

NARRATIVE: CASE EVENT DATE: 20211120
